FAERS Safety Report 5546755-4 (Version None)
Quarter: 2007Q4

REPORT INFORMATION
  Report Type: 
  Country: None (occurrence: None)
  Receive Date: 20071207
  Receipt Date: 20071207
  Transmission Date: 20080405
  Serious: Yes (Hospitalization)
  Sender: FDA-Public Use
  Company Number: None

PATIENT
  Age: 78 Year
  Sex: Female
  Weight: 73.9 kg

DRUGS (2)
  1. STADOL [Suspect]
     Dosage: 1MG DAILY IV
     Route: 042
     Dates: start: 20070802, end: 20070802
  2. ZOFRAN [Suspect]
     Dosage: 8MG DAILY IV
     Route: 042
     Dates: start: 20070802, end: 20070802

REACTIONS (1)
  - ACUTE RESPIRATORY FAILURE [None]
